APPROVED DRUG PRODUCT: CARISOPRODOL
Active Ingredient: CARISOPRODOL
Strength: 250MG
Dosage Form/Route: TABLET;ORAL
Application: A040792 | Product #002 | TE Code: AB
Applicant: AUROBINDO PHARMA LTD
Approved: Nov 8, 2016 | RLD: No | RS: No | Type: RX